FAERS Safety Report 4675511-4 (Version None)
Quarter: 2005Q2

REPORT INFORMATION
  Report Type: 
  Country: None (occurrence: None)
  Receive Date: 20050527
  Receipt Date: 20050330
  Transmission Date: 20051028
  Serious: No
  Sender: FDA-Public Use
  Company Number: US-BRISTOL-MYERS SQUIBB COMPANY-12914743

PATIENT
  Age: 39 Year
  Sex: Female
  Weight: 104 kg

DRUGS (6)
  1. ABILIFY [Suspect]
     Indication: PARANOIA
  2. ABILIFY [Suspect]
     Indication: SLUGGISHNESS
  3. ABILIFY [Suspect]
     Indication: DEPRESSED MOOD
  4. RISPERDAL [Concomitant]
  5. ASPIRIN [Concomitant]
  6. MULTI-VITAMINS [Concomitant]

REACTIONS (3)
  - DRUG INEFFECTIVE [None]
  - PARANOIA [None]
  - PHAGOPHOBIA [None]
